FAERS Safety Report 8177905-1 (Version None)
Quarter: 2012Q1

REPORT INFORMATION
  Report Type: 
  Country: None (occurrence: None)
  Receive Date: 20120301
  Receipt Date: 20120222
  Transmission Date: 20120608
  Serious: Yes (Hospitalization, Other)
  Sender: FDA-Public Use
  Company Number: JP-PFIZER INC-2012047488

PATIENT
  Age: 29 Year
  Sex: Male

DRUGS (1)
  1. CORTRIL [Suspect]
     Dosage: 30 MG, UNK
     Route: 048

REACTIONS (3)
  - SEPTIC SHOCK [None]
  - ESCHERICHIA INFECTION [None]
  - DECREASED IMMUNE RESPONSIVENESS [None]
